FAERS Safety Report 5284991-5 (Version None)
Quarter: 2007Q1

REPORT INFORMATION
  Report Type: 
  Country: None (occurrence: None)
  Receive Date: 20061226
  Receipt Date: 20060510
  Transmission Date: 20070707
  Serious: Yes (Other)
  Sender: FDA-Public Use
  Company Number: WAES 0605USA02026

PATIENT
  Age: 64 Year
  Sex: Female

DRUGS (1)
  1. ZETIA [Suspect]
     Dosage: 10 MG/DAILY/PO
     Route: 048

REACTIONS (11)
  - ARTHRALGIA [None]
  - CONFUSIONAL STATE [None]
  - CONSTIPATION [None]
  - GASTROOESOPHAGEAL REFLUX DISEASE [None]
  - HEPATITIS [None]
  - MENOPAUSAL SYMPTOMS [None]
  - MENTAL STATUS CHANGES [None]
  - OSTEOARTHRITIS [None]
  - PAIN IN EXTREMITY [None]
  - PHARYNGITIS [None]
  - WEIGHT DECREASED [None]
